FAERS Safety Report 10237415 (Version 3)
Quarter: 2014Q4

REPORT INFORMATION
  Report Type: Spontaneous
  Country: IT (occurrence: IT)
  Receive Date: 20140614
  Receipt Date: 20141203
  Transmission Date: 20150528
  Serious: Yes (Hospitalization)
  Sender: FDA-Public Use
  Company Number: IT-009507513-1406ITA003179

PATIENT
  Age: 77 Year
  Sex: Female

DRUGS (5)
  1. FOSAVANCE [Suspect]
     Active Substance: ALENDRONATE SODIUM\CHOLECALCIFEROL
     Indication: OSTEOPOROSIS
     Dosage: UNK
     Route: 048
  2. METFONORM [Concomitant]
     Indication: TYPE 2 DIABETES MELLITUS
     Dosage: UNK
     Route: 048
  3. TRIATEC (RAMIPRIL) [Interacting]
     Active Substance: RAMIPRIL
     Indication: ESSENTIAL HYPERTENSION
     Dosage: 10 MG, QD
     Route: 048
  4. PLENDIL [Interacting]
     Active Substance: FELODIPINE
     Indication: ESSENTIAL HYPERTENSION
     Dosage: 10 MG, QD
     Route: 048
  5. OMEPRAZEN [Concomitant]
     Active Substance: OMEPRAZOLE
     Indication: GASTRITIS
     Dosage: UNK
     Route: 048

REACTIONS (3)
  - Hypoglycaemia [Unknown]
  - Dyspnoea [Unknown]
  - Pulmonary oedema [Unknown]

NARRATIVE: CASE EVENT DATE: 20140509
